FAERS Safety Report 6767259-7 (Version None)
Quarter: 2010Q2

REPORT INFORMATION
  Report Type: 
  Country: None (occurrence: None)
  Receive Date: 20100611
  Receipt Date: 20100611
  Transmission Date: 20101027
  Serious: Yes (Death, Hospitalization)
  Sender: FDA-Public Use
  Company Number: None

PATIENT
  Sex: Male
  Weight: 81.6475 kg

DRUGS (10)
  1. ALIMTA [Suspect]
     Indication: NON-SMALL CELL LUNG CANCER
     Dosage: 500MG/M2 IV
     Route: 042
     Dates: start: 20100316, end: 20100516
  2. AVASTIN [Suspect]
     Indication: NON-SMALL CELL LUNG CANCER
     Dosage: 15MG/M2 IV
     Route: 042
     Dates: start: 20100316, end: 20100516
  3. VIT B12 [Concomitant]
  4. FOLIC ACID [Concomitant]
  5. METOPROLOL [Concomitant]
  6. ALPRAZOLAM [Concomitant]
  7. GEMFIBROZIL [Concomitant]
  8. METFORMIN [Concomitant]
  9. LASIX [Concomitant]
  10. COLCHICINE [Concomitant]

REACTIONS (5)
  - DEHYDRATION [None]
  - DIARRHOEA [None]
  - NAUSEA [None]
  - SEPTIC SHOCK [None]
  - VOMITING [None]
